FAERS Safety Report 6166500-1 (Version None)
Quarter: 2009Q2

REPORT INFORMATION
  Report Type: 
  Country: None (occurrence: None)
  Receive Date: 20090422
  Receipt Date: 20090422
  Transmission Date: 20091009
  Serious: Yes (Other)
  Sender: FDA-Public Use
  Company Number: None

PATIENT
  Age: 59 Year
  Sex: Female
  Weight: 54.4316 kg

DRUGS (4)
  1. PROPOXYPHENE HCL AND ACETAMINOPHEN [Suspect]
     Indication: BACK PAIN
     Dosage: 1 Q 12 HOURS PO
     Route: 048
     Dates: start: 20090220, end: 20090421
  2. PROPOXYPHENE HCL AND ACETAMINOPHEN [Suspect]
     Indication: PAIN IN EXTREMITY
     Dosage: 1 Q 12 HOURS PO
     Route: 048
     Dates: start: 20090220, end: 20090421
  3. CARISOPRODOL [Suspect]
     Indication: BACK PAIN
     Dosage: 1 TID PO
     Route: 048
     Dates: start: 20090417, end: 20090421
  4. CARISOPRODOL [Suspect]
     Indication: PAIN IN EXTREMITY
     Dosage: 1 TID PO
     Route: 048
     Dates: start: 20090417, end: 20090421

REACTIONS (5)
  - COORDINATION ABNORMAL [None]
  - DIPLOPIA [None]
  - MUSCLE SPASMS [None]
  - NO THERAPEUTIC RESPONSE [None]
  - PRODUCT SUBSTITUTION ISSUE [None]
